FAERS Safety Report 4590666-8 (Version None)
Quarter: 2005Q1

REPORT INFORMATION
  Report Type: 
  Country: None (occurrence: None)
  Receive Date: 20050224
  Receipt Date: 20040903
  Transmission Date: 20050727
  Serious: Yes (Hospitalization)
  Sender: FDA-Public Use
  Company Number: AU-ABBOTT-04P-008-0272605-00

PATIENT
  Sex: Male

DRUGS (13)
  1. RITONAVIR [Suspect]
     Indication: HIV INFECTION
     Route: 048
     Dates: start: 20031112
  2. BACTRIM [Concomitant]
     Indication: INFECTION PROPHYLAXIS
     Route: 048
  3. RIFABUTIN [Concomitant]
     Indication: ANTIBACTERIAL PROPHYLAXIS
     Route: 048
  4. SUSTANON [Concomitant]
     Indication: BLOOD TESTOSTERONE DECREASED
     Route: 030
  5. FLUCONAZOLE [Concomitant]
     Indication: ANTIFUNGAL PROPHYLAXIS
     Route: 048
  6. FLUCONAZOLE [Concomitant]
  7. VALACYCLOVIR HCL [Concomitant]
     Indication: ANTIVIRAL PROPHYLAXIS
     Route: 048
  8. GEMFIBROZIL [Concomitant]
     Indication: HYPERLIPIDAEMIA
     Route: 048
     Dates: start: 20030729
  9. DOXORUBICIN [Concomitant]
     Indication: KAPOSI'S SARCOMA
     Route: 042
     Dates: start: 20030821
  10. GRANULOCYTE COLONY STIMULATING FACTOR [Concomitant]
     Indication: NEUTROPENIA
     Route: 058
  11. ABACAVIR [Concomitant]
     Indication: HIV INFECTION
     Route: 058
     Dates: start: 19990519
  12. LAMIVUDINE [Concomitant]
     Indication: HIV INFECTION
     Route: 048
     Dates: start: 20030813
  13. ENFUVITIDE [Concomitant]
     Indication: HIV INFECTION
     Route: 058
     Dates: start: 20010516

REACTIONS (14)
  - ANOREXIA [None]
  - CHILLS [None]
  - CLOSTRIDIUM COLITIS [None]
  - DYSPNOEA [None]
  - ENDOCARDITIS [None]
  - GLOMERULONEPHRITIS FOCAL [None]
  - INFECTION [None]
  - LETHARGY [None]
  - MALAISE [None]
  - PANCYTOPENIA [None]
  - PORTAL HYPERTENSION [None]
  - PYREXIA [None]
  - SEPSIS [None]
  - STREPTOCOCCAL SEPSIS [None]
